FAERS Safety Report 9440119 (Version 2)
Quarter: 2013Q3

REPORT INFORMATION
  Report Type: Spontaneous
  Country: US (occurrence: US)
  Receive Date: 20130805
  Receipt Date: 20130916
  Transmission Date: 20140515
  Serious: Yes (Other)
  Sender: FDA-Public Use
  Company Number: US-PFIZER INC-2013226509

PATIENT
  Age: 50 Year
  Sex: Female
  Weight: 60.77 kg

DRUGS (3)
  1. PRISTIQ [Suspect]
     Indication: DEPRESSION
     Dosage: 100 MG, 1X/DAY
     Route: 048
     Dates: start: 20110311
  2. PRISTIQ [Suspect]
     Indication: ANXIETY
  3. ALPRAZOLAM [Concomitant]
     Dosage: 1 MG - 6 1/2 TABS THROUGH OUT DAY
     Route: 048

REACTIONS (2)
  - Ear infection [Recovered/Resolved]
  - Otitis externa [Recovered/Resolved]
